FAERS Safety Report 9927462 (Version 1)
Quarter: 2014Q1

REPORT INFORMATION
  Report Type: Report from Study
  Country: US (occurrence: US)
  Receive Date: 20140227
  Receipt Date: 20140227
  Transmission Date: 20141002
  Serious: Yes (Other)
  Sender: FDA-Public Use
  Company Number: US-ROCHE-1331573

PATIENT
  Sex: Male

DRUGS (19)
  1. LUCENTIS [Suspect]
     Indication: RETINAL VEIN OCCLUSION
     Route: 050
     Dates: start: 20100216
  2. LUCENTIS [Suspect]
     Indication: RETINAL OEDEMA
     Route: 050
     Dates: start: 20100323
  3. LUCENTIS [Suspect]
     Route: 050
     Dates: start: 20100518
  4. LUCENTIS [Suspect]
     Route: 050
     Dates: start: 20100720
  5. LUCENTIS [Suspect]
     Route: 050
     Dates: start: 20110218
  6. LUCENTIS [Suspect]
     Route: 050
     Dates: start: 20110322
  7. LUCENTIS [Suspect]
     Route: 050
     Dates: start: 20110614
  8. LUCENTIS [Suspect]
     Route: 050
     Dates: start: 20120116
  9. LUCENTIS [Suspect]
     Route: 050
     Dates: start: 20120430
  10. LUCENTIS [Suspect]
     Route: 050
     Dates: start: 20120830
  11. LUCENTIS [Suspect]
     Route: 050
     Dates: start: 20130124
  12. LUCENTIS [Suspect]
     Route: 050
     Dates: start: 20130212
  13. LUCENTIS [Suspect]
     Route: 050
     Dates: start: 20130417
  14. AVASTIN [Suspect]
     Indication: PRODUCT USED FOR UNKNOWN INDICATION
     Route: 042
     Dates: start: 20090929
  15. AVASTIN [Suspect]
     Route: 042
     Dates: start: 20091117
  16. LISINOPRIL [Concomitant]
     Route: 065
  17. VIGAMOX [Concomitant]
     Dosage: THEN QID X 3DAYS RIGHT EYE 0.5%
     Route: 065
  18. PENICILLIN V POTASSIUM [Concomitant]
  19. BESIVANCE [Concomitant]
     Dosage: THEN QID X 3DAYS BOTH EYES, 0.6%
     Route: 065

REACTIONS (5)
  - Retinal oedema [Unknown]
  - Retinal haemorrhage [Unknown]
  - Retinal ischaemia [Unknown]
  - Cataract nuclear [Unknown]
  - Retinal vein occlusion [Unknown]
